FAERS Safety Report 8171845-X (Version None)
Quarter: 2012Q1

REPORT INFORMATION
  Report Type: 
  Country: None (occurrence: None)
  Receive Date: 20120228
  Receipt Date: 20120216
  Transmission Date: 20120608
  Serious: Yes (Hospitalization, Other)
  Sender: FDA-Public Use
  Company Number: CO-ELI_LILLY_AND_COMPANY-CO201202005070

PATIENT
  Age: 38 Year
  Sex: Female

DRUGS (2)
  1. CALCIUM + VITAMIN D [Concomitant]
     Dosage: UNK
  2. HUMALOG [Suspect]
     Indication: TYPE 1 DIABETES MELLITUS
     Dosage: 5 IU, TID
     Route: 058
     Dates: start: 20060101

REACTIONS (4)
  - VAGINAL HAEMORRHAGE [None]
  - MENSTRUAL DISORDER [None]
  - LEUKOPENIA [None]
  - LEUKAEMIA [None]
